FAERS Safety Report 24609494 (Version 1)
Quarter: 2024Q4

REPORT INFORMATION
  Report Type: Spontaneous
  Country: CN (occurrence: CN)
  Receive Date: 20241112
  Receipt Date: 20241112
  Transmission Date: 20250114
  Serious: Yes (Life-Threatening, Other)
  Sender: BRISTOL-MYERS SQUIBB COMPANY
  Company Number: CN-MLMSERVICE-20241025-PI234485-00117-1

PATIENT
  Age: 21 Year
  Sex: Male

DRUGS (13)
  1. LENALIDOMIDE [Suspect]
     Active Substance: LENALIDOMIDE
     Indication: Central nervous system leukaemia
     Route: 048
     Dates: start: 202001
  2. LENALIDOMIDE [Suspect]
     Active Substance: LENALIDOMIDE
     Route: 048
     Dates: start: 202201
  3. DEXAMETHASONE [Suspect]
     Active Substance: DEXAMETHASONE
     Indication: Central nervous system leukaemia
     Route: 042
     Dates: start: 201808
  4. DEXAMETHASONE [Suspect]
     Active Substance: DEXAMETHASONE
     Route: 042
     Dates: start: 201904
  5. DEXAMETHASONE [Suspect]
     Active Substance: DEXAMETHASONE
     Dosage: 6 CYCLES, 3-6 TIMES PER CYCLE, TOTALING 23 TIMES
     Route: 037
     Dates: start: 201808, end: 201912
  6. EPIRUBICIN [Suspect]
     Active Substance: EPIRUBICIN
     Indication: Central nervous system leukaemia
     Route: 042
     Dates: start: 201808
  7. EPIRUBICIN [Suspect]
     Active Substance: EPIRUBICIN
     Route: 042
     Dates: start: 201904
  8. CYCLOPHOSPHAMIDE [Suspect]
     Active Substance: CYCLOPHOSPHAMIDE
     Indication: Central nervous system leukaemia
     Route: 042
     Dates: start: 201808
  9. CYCLOPHOSPHAMIDE [Suspect]
     Active Substance: CYCLOPHOSPHAMIDE
     Route: 042
     Dates: start: 201904
  10. VINDESINE [Suspect]
     Active Substance: VINDESINE
     Indication: Central nervous system leukaemia
     Route: 042
     Dates: start: 201808
  11. VINDESINE [Suspect]
     Active Substance: VINDESINE
     Route: 042
     Dates: start: 201904
  12. METHOTREXATE [Suspect]
     Active Substance: METHOTREXATE
     Indication: Central nervous system leukaemia
     Dosage: 6 CYCLES, 3-6 TIMES PER CYCLE, TOTALING 23 TIMES
     Route: 029
     Dates: start: 201808, end: 201912
  13. CYTARABINE [Suspect]
     Active Substance: CYTARABINE
     Indication: Central nervous system leukaemia
     Dosage: 6 CYCLES, 3-6 TIMES PER CYCLE, TOTALING 23 TIMES
     Route: 029
     Dates: start: 201808, end: 201912

REACTIONS (3)
  - Myelosuppression [Unknown]
  - Infection [Unknown]
  - Off label use [Unknown]

NARRATIVE: CASE EVENT DATE: 20180101
